FAERS Safety Report 7044021-1 (Version None)
Quarter: 2010Q4

REPORT INFORMATION
  Report Type: 
  Country: None (occurrence: None)
  Receive Date: 20101013
  Receipt Date: 20101007
  Transmission Date: 20110411
  Serious: Yes (Hospitalization, Other)
  Sender: FDA-Public Use
  Company Number: US-AMGEN-QUU393710

PATIENT
  Sex: Female
  Weight: 73.1 kg

DRUGS (4)
  1. NPLATE [Suspect]
     Indication: IDIOPATHIC THROMBOCYTOPENIC PURPURA
     Dates: start: 20090821, end: 20091001
  2. CORTICOSTEROIDS [Concomitant]
  3. DECADRON [Concomitant]
     Dates: start: 20060801
  4. PREDNISONE [Concomitant]
     Dates: start: 20041101

REACTIONS (11)
  - CONJUNCTIVITIS [None]
  - DIZZINESS [None]
  - DIZZINESS POSTURAL [None]
  - HEADACHE [None]
  - LARGE GRANULAR LYMPHOCYTOSIS [None]
  - MUSCULOSKELETAL PAIN [None]
  - OPTIC NEURITIS [None]
  - PAIN [None]
  - PARAESTHESIA [None]
  - PNEUMONIA [None]
  - SARCOIDOSIS [None]
